FAERS Safety Report 10018400 (Version 1)
Quarter: 2014Q1

REPORT INFORMATION
  Report Type: Spontaneous
  Country: US (occurrence: None)
  Receive Date: 20140314
  Receipt Date: 20140314
  Transmission Date: 20141002
  Serious: Yes (Disabling)
  Sender: FDA-Public Use
  Company Number: None

PATIENT
  Age: 62 Year
  Sex: Female
  Weight: 88.91 kg

DRUGS (1)
  1. LEVOFLOXACIN [Suspect]
     Indication: OROPHARYNGEAL PAIN
     Dosage: 1 TABLET
     Route: 048
     Dates: start: 20131212, end: 20131218

REACTIONS (6)
  - Pain [None]
  - Discomfort [None]
  - Local swelling [None]
  - Local swelling [None]
  - Pain in extremity [None]
  - Pain in extremity [None]
